FAERS Safety Report 17542068 (Version 1)
Quarter: 2020Q1

REPORT INFORMATION
  Report Type: Report from Study
  Country: JP (occurrence: JP)
  Receive Date: 20200313
  Receipt Date: 20200313
  Transmission Date: 20200409
  Serious: Yes (Other)
  Sender: FDA-Public Use
  Company Number: JP-JNJFOC-20200309032

PATIENT

DRUGS (2)
  1. CANAGLIFLOZIN [Suspect]
     Active Substance: CANAGLIFLOZIN
     Indication: TYPE 2 DIABETES MELLITUS
     Route: 048
  2. TENELIGLIPTIN [Suspect]
     Active Substance: TENELIGLIPTIN
     Indication: TYPE 2 DIABETES MELLITUS
     Route: 065

REACTIONS (9)
  - Palpitations [Recovered/Resolved]
  - Respiratory tract infection [Recovered/Resolved]
  - Pollakiuria [Recovered/Resolved]
  - Urine ketone body present [Recovered/Resolved]
  - Pruritus [Recovered/Resolved]
  - Hypoglycaemia [Recovered/Resolved]
  - Gastritis [Recovered/Resolved]
  - Adverse event [Recovered/Resolved]
  - Orthostatic hypotension [Recovered/Resolved]
